FAERS Safety Report 4637492-9 (Version None)
Quarter: 2005Q2

REPORT INFORMATION
  Report Type: 
  Country: None (occurrence: None)
  Receive Date: 20050328
  Receipt Date: 20050118
  Transmission Date: 20051028
  Serious: No
  Sender: FDA-Public Use
  Company Number: USA040466298

PATIENT
  Age: 27 Year
  Sex: Female
  Weight: 89 kg

DRUGS (9)
  1. STRATTERA [Suspect]
     Indication: ATTENTION DEFICIT/HYPERACTIVITY DISORDER
     Dosage: 40 MG/1 DAY
     Dates: start: 20040304
  2. ZOLOFT (SERTRALINE HYDRCHLORIDE) [Concomitant]
  3. THYROID TAB [Concomitant]
  4. VITAMINS [Concomitant]
  5. OVRAL [Concomitant]
  6. CONCERTA [Concomitant]
  7. TUSSIN SYRUP (GUAIIFENESIN) [Concomitant]
  8. TUSSIN DM [Concomitant]
  9. DIPHENHYDRAMINE HCL [Concomitant]

REACTIONS (11)
  - ANGER [None]
  - COUGH [None]
  - DRUG INEFFECTIVE [None]
  - FEELING ABNORMAL [None]
  - HYPERTENSION [None]
  - IRRITABILITY [None]
  - JUDGEMENT IMPAIRED [None]
  - MEMORY IMPAIRMENT [None]
  - MOOD SWINGS [None]
  - NASOPHARYNGITIS [None]
  - NAUSEA [None]
